FAERS Safety Report 21973529 (Version 8)
Quarter: 2023Q2

REPORT INFORMATION
  Report Type: Spontaneous
  Country: US (occurrence: US)
  Receive Date: 20230209
  Receipt Date: 20230530
  Transmission Date: 20230722
  Serious: Yes (Hospitalization, Other)
  Sender: FDA-Public Use
  Company Number: US-PFIZER INC-202101648198

PATIENT
  Age: 72 Year
  Sex: Female
  Weight: 91.61 kg

DRUGS (2)
  1. IBRANCE [Suspect]
     Active Substance: PALBOCICLIB
     Indication: Breast cancer metastatic
     Dosage: 125 MG, 1X/DAY (1 DAY 125 MG)
     Dates: start: 202108
  2. LETROZOLE [Concomitant]
     Active Substance: LETROZOLE
     Dosage: 2.5 MG, 1X/DAY
     Dates: start: 202107

REACTIONS (13)
  - Psychiatric symptom [Not Recovered/Not Resolved]
  - Fear [Not Recovered/Not Resolved]
  - Initial insomnia [Not Recovered/Not Resolved]
  - Depressed mood [Not Recovered/Not Resolved]
  - Nausea [Recovering/Resolving]
  - Taste disorder [Recovering/Resolving]
  - Appetite disorder [Recovering/Resolving]
  - Weight fluctuation [Recovering/Resolving]
  - Neoplasm progression [Recovering/Resolving]
  - Stress [Unknown]
  - Feeling abnormal [Unknown]
  - Confusional state [Unknown]
  - Poor quality sleep [Unknown]
